FAERS Safety Report 4558743-5 (Version None)
Quarter: 2005Q1

REPORT INFORMATION
  Report Type: 
  Country: None (occurrence: None)
  Receive Date: 20050119
  Receipt Date: 20041217
  Transmission Date: 20050727
  Serious: No
  Sender: FDA-Public Use
  Company Number: 040066

PATIENT
  Age: 58 Year
  Sex: Female

DRUGS (2)
  1. HALFLYTELY [Suspect]
     Indication: COLONOSCOPY
     Dosage: 20 MG/2 LITER
     Dates: start: 20041207
  2. ACIPHEX [Concomitant]

REACTIONS (3)
  - COLITIS ISCHAEMIC [None]
  - PAIN [None]
  - VOMITING [None]
